FAERS Safety Report 8593994-4 (Version None)
Quarter: 2012Q3

REPORT INFORMATION
  Report Type: 
  Country: None (occurrence: None)
  Receive Date: 20120814
  Receipt Date: 20120730
  Transmission Date: 20120928
  Serious: Yes (Other)
  Sender: FDA-Public Use
  Company Number: IT-ARROW-2012-14037

PATIENT
  Age: 65 Year
  Sex: Male

DRUGS (5)
  1. ENTACAPONE [Suspect]
     Indication: PARKINSON'S DISEASE
     Dosage: 800 MG, DAILY
     Route: 065
  2. PRAMIPEXOLE DIHYDROCHLORIDE [Suspect]
     Indication: PARKINSON'S DISEASE
     Dosage: 3.05 MG, DAILY
     Route: 065
  3. CABERGOLINE [Suspect]
     Indication: PARKINSON'S DISEASE
     Dosage: 8 MG, DAILY
     Route: 065
  4. CARBIDOPA + LEVODOPA [Suspect]
     Indication: PARKINSON'S DISEASE
     Dosage: 400/100 MG/D
     Route: 065
  5. FINASTERIDE [Suspect]
     Indication: BENIGN PROSTATIC HYPERPLASIA
     Dosage: 5 MG, DAILY
     Route: 065

REACTIONS (5)
  - ON AND OFF PHENOMENON [None]
  - CHOREA [None]
  - PATHOLOGICAL GAMBLING [None]
  - DEPENDENCE [None]
  - DRUG EFFECT DECREASED [None]
